FAERS Safety Report 10157376 (Version 1)
Quarter: 2014Q2

REPORT INFORMATION
  Report Type: Other
  Country: CO (occurrence: CO)
  Receive Date: 20140507
  Receipt Date: 20140507
  Transmission Date: 20141212
  Serious: Yes (Hospitalization)
  Sender: FDA-Public Use
  Company Number: CO-SHIRE-CO201401977

PATIENT
  Sex: Male
  Weight: 28 kg

DRUGS (1)
  1. ELAPRASE [Suspect]
     Indication: MUCOPOLYSACCHARIDOSIS II
     Dosage: 12 MG (TWO VIALS), OTHER (EVERY 8 DAYS)
     Route: 041

REACTIONS (3)
  - General physical health deterioration [Not Recovered/Not Resolved]
  - Eye colour change [Not Recovered/Not Resolved]
  - Blood potassium increased [Not Recovered/Not Resolved]
